FAERS Safety Report 4818429-6 (Version None)
Quarter: 2005Q4

REPORT INFORMATION
  Report Type: 
  Country: None (occurrence: None)
  Receive Date: 20051031
  Receipt Date: 20051019
  Transmission Date: 20060501
  Serious: Yes (Hospitalization)
  Sender: FDA-Public Use
  Company Number: 2005145377

PATIENT
  Age: 49 Year
  Sex: Female

DRUGS (5)
  1. LYRICA [Suspect]
     Indication: DIABETIC NEUROPATHY
     Dosage: 150 MG (50 MG, 3 IN 1 D), ORAL
     Route: 048
     Dates: start: 20051001, end: 20051001
  2. AVANDIA [Concomitant]
  3. ASPIRIN [Concomitant]
  4. ALTACE [Concomitant]
  5. STARLIX [Concomitant]

REACTIONS (1)
  - CEREBROVASCULAR ACCIDENT [None]
